FAERS Safety Report 20505452 (Version 3)
Quarter: 2022Q2

REPORT INFORMATION
  Report Type: Report from Study
  Country: CA (occurrence: CA)
  Receive Date: 20220223
  Receipt Date: 20220620
  Transmission Date: 20220721
  Serious: Yes (Other)
  Sender: FDA-Public Use
  Company Number: CA-JNJFOC-20211140480

PATIENT
  Age: 17 Year
  Sex: Male
  Weight: 60 kg

DRUGS (3)
  1. REMICADE [Suspect]
     Active Substance: INFLIXIMAB
     Indication: Colitis ulcerative
     Dosage: DOSE: 10MG/KG ON WEEK 0,1,4, THEN EVERY 4 WEEKS.
     Route: 042
     Dates: start: 20211117
  2. REMICADE [Suspect]
     Active Substance: INFLIXIMAB
     Dosage: ON 17-FEB-2022, THE PATIENT RECEIVED 05TH INFUSION WITH THE DOSE OF 400 MG.
     Route: 042
     Dates: start: 20220120
  3. REMICADE [Suspect]
     Active Substance: INFLIXIMAB
     Dosage: DOSE INCREASED TO 10MG/KG STAT AND THEN EVERY 4
     Route: 042
     Dates: start: 2022

REACTIONS (6)
  - Haematochezia [Not Recovered/Not Resolved]
  - Drug level increased [Unknown]
  - Frequent bowel movements [Not Recovered/Not Resolved]
  - General physical health deterioration [Not Recovered/Not Resolved]
  - Off label use [Unknown]
  - Product use issue [Unknown]

NARRATIVE: CASE EVENT DATE: 20211117
